FAERS Safety Report 26091679 (Version 1)
Quarter: 2025Q4

REPORT INFORMATION
  Report Type: Spontaneous
  Country: US (occurrence: US)
  Receive Date: 20251126
  Receipt Date: 20251126
  Transmission Date: 20260117
  Serious: No
  Sender: AUROBINDO
  Company Number: US-AUROBINDO-AUR-APL-2025-044637

PATIENT
  Age: 56 Year
  Sex: Male
  Weight: 99.7 kg

DRUGS (1)
  1. DICLOFENAC SODIUM [Suspect]
     Active Substance: DICLOFENAC SODIUM
     Indication: Surgery
     Dosage: UNK, TWO TIMES A DAY

REACTIONS (2)
  - Product dose omission issue [Unknown]
  - Device malfunction [Unknown]
